FAERS Safety Report 8249885-1 (Version None)
Quarter: 2012Q2

REPORT INFORMATION
  Report Type: 
  Country: None (occurrence: None)
  Receive Date: 20120402
  Receipt Date: 20120329
  Transmission Date: 20120825
  Serious: Yes (Life-Threatening, Hospitalization, Other)
  Sender: FDA-Public Use
  Company Number: PHHY2012BR027554

PATIENT
  Age: 80 Year
  Sex: Female

DRUGS (1)
  1. RASILEZ [Suspect]
     Indication: ATRIAL FIBRILLATION
     Dosage: 1 DF, UNK

REACTIONS (6)
  - HEART RATE DECREASED [None]
  - COUGH [None]
  - FEELING ABNORMAL [None]
  - ASTHENIA [None]
  - CATATONIA [None]
  - BRONCHOPNEUMONIA [None]
